FAERS Safety Report 7480831-4 (Version None)
Quarter: 2011Q2

REPORT INFORMATION
  Report Type: 
  Country: None (occurrence: None)
  Receive Date: 20110512
  Receipt Date: 20110512
  Transmission Date: 20111010
  Serious: No
  Sender: FDA-Public Use
  Company Number: None

PATIENT
  Age: 83 Year
  Sex: Female
  Weight: 63.5036 kg

DRUGS (5)
  1. OXYBUTYNIN [Concomitant]
  2. IBANDRONATE SODIUM [Suspect]
     Indication: OSTEOPENIA
     Dosage: 3 MG Q 3 MONTHS IV
     Route: 042
     Dates: start: 20070801, end: 20110201
  3. LEVOTHYROXINE SODIUM [Concomitant]
  4. CALCIUM CARBONATE [Concomitant]
  5. PANTOPRAZOLE [Concomitant]

REACTIONS (1)
  - TOOTH FRACTURE [None]
